FAERS Safety Report 9523385 (Version 2)
Quarter: 2013Q4

REPORT INFORMATION
  Report Type: Spontaneous
  Country: US (occurrence: US)
  Receive Date: 20130913
  Receipt Date: 20131014
  Transmission Date: 20140711
  Serious: Yes (Life-Threatening, Hospitalization, Other)
  Sender: FDA-Public Use
  Company Number: US-ROXANE LABORATORIES, INC.-2013-RO-01515RO

PATIENT
  Age: 66 Year
  Sex: Male

DRUGS (4)
  1. LEVETIRACETAM [Suspect]
     Indication: CONVULSION
     Dosage: 500 MG
  2. LEVETIRACETAM [Suspect]
     Dosage: 1000 MG
  3. LEVETIRACETAM [Suspect]
     Dosage: 2000 MG
  4. INSULIN [Suspect]

REACTIONS (8)
  - Suicide attempt [Unknown]
  - Major depression [Unknown]
  - Blood creatine phosphokinase increased [Unknown]
  - Hyperglycaemia [Unknown]
  - Hypocalcaemia [Unknown]
  - Anaemia [Unknown]
  - Atrioventricular block first degree [Unknown]
  - Electrocardiogram QT prolonged [Unknown]
